FAERS Safety Report 12900444 (Version 2)
Quarter: 2016Q4

REPORT INFORMATION
  Report Type: Report from Study
  Country: US (occurrence: US)
  Receive Date: 20161101
  Receipt Date: 20161121
  Transmission Date: 20170207
  Serious: Yes (Life-Threatening, Disabling)
  Sender: FDA-Public Use
  Company Number: US-ACTELION-A-US2016-144378

PATIENT
  Age: 71 Year
  Sex: Female

DRUGS (11)
  1. PRILOCAINE [Concomitant]
     Active Substance: PRILOCAINE
  2. CEFDINIR. [Concomitant]
     Active Substance: CEFDINIR
  3. CELECOXIB. [Concomitant]
     Active Substance: CELECOXIB
  4. ALPRAZOLAM. [Concomitant]
     Active Substance: ALPRAZOLAM
  5. LEVOTHYROXIN [Concomitant]
     Active Substance: LEVOTHYROXINE
  6. POTASSIUM CHLORIDE. [Concomitant]
     Active Substance: POTASSIUM CHLORIDE
  7. CEPHALEXIN. [Concomitant]
     Active Substance: CEPHALEXIN
  8. GLUCOSAMINE [Concomitant]
     Active Substance: GLUCOSAMINE
  9. OPSUMIT [Suspect]
     Active Substance: MACITENTAN
     Indication: PULMONARY ARTERIAL HYPERTENSION
     Dosage: 10 MG, QD
     Route: 048
     Dates: start: 20140714
  10. VITAMIN B12 [Concomitant]
     Active Substance: CYANOCOBALAMIN
  11. MECLIZINE [Concomitant]
     Active Substance: MECLIZINE HYDROCHLORIDE

REACTIONS (14)
  - Suicidal ideation [Recovered/Resolved]
  - Back pain [Unknown]
  - Self-injurious ideation [Recovered/Resolved]
  - Cystitis [Unknown]
  - Nasal congestion [Unknown]
  - Pain in extremity [Not Recovered/Not Resolved]
  - Drug dependence [Recovering/Resolving]
  - Renal impairment [Unknown]
  - Headache [Unknown]
  - Peripheral swelling [Unknown]
  - Aggression [Recovering/Resolving]
  - Tremor [Recovering/Resolving]
  - Paraesthesia [Recovering/Resolving]
  - Abdominal pain [Unknown]
